FAERS Safety Report 19608325 (Version 4)
Quarter: 2021Q3

REPORT INFORMATION
  Report Type: Spontaneous
  Country: US (occurrence: US)
  Receive Date: 20210726
  Receipt Date: 20210729
  Transmission Date: 20211014
  Serious: Yes (Hospitalization, Other)
  Sender: FDA-Public Use
  Company Number: US-CELGENEUS-USA-20210704616

PATIENT
  Age: 10 Year
  Sex: Male
  Weight: 29.1 kg

DRUGS (7)
  1. CYTARABINE. [Suspect]
     Active Substance: CYTARABINE
     Route: 041
     Dates: start: 20190913
  2. CARVEDILOL. [Suspect]
     Active Substance: CARVEDILOL
     Indication: PRODUCT USED FOR UNKNOWN INDICATION
     Route: 065
     Dates: start: 20191013
  3. AZACITIDINE INJECTABLE [Suspect]
     Active Substance: AZACITIDINE
     Indication: ACUTE MYELOID LEUKAEMIA
     Route: 041
     Dates: start: 20190914
  4. PEVONEDISTAT [Suspect]
     Active Substance: PEVONEDISTAT
     Indication: ACUTE MYELOID LEUKAEMIA
     Route: 041
     Dates: start: 20190914
  5. CYTARABINE. [Suspect]
     Active Substance: CYTARABINE
     Indication: ACUTE MYELOID LEUKAEMIA
     Route: 037
     Dates: start: 201906, end: 201906
  6. CYTARABINE. [Suspect]
     Active Substance: CYTARABINE
     Route: 041
     Dates: start: 201908, end: 201908
  7. FLUDARABINE [Suspect]
     Active Substance: FLUDARABINE PHOSPHATE
     Indication: ACUTE MYELOID LEUKAEMIA
     Route: 041
     Dates: start: 20190919

REACTIONS (6)
  - Cardiac failure congestive [Recovered/Resolved]
  - Left ventricular dysfunction [Recovering/Resolving]
  - Sinus tachycardia [Recovering/Resolving]
  - Ejection fraction decreased [Recovering/Resolving]
  - Angina pectoris [Recovering/Resolving]
  - Dyspnoea [Recovering/Resolving]

NARRATIVE: CASE EVENT DATE: 20191011
